FAERS Safety Report 20301837 (Version 1)
Quarter: 2022Q1

REPORT INFORMATION
  Report Type: Report from Study
  Country: CA (occurrence: CA)
  Receive Date: 20220105
  Receipt Date: 20220105
  Transmission Date: 20220423
  Serious: Yes (Hospitalization)
  Sender: FDA-Public Use
  Company Number: CA-BEH-2022140150

PATIENT
  Age: 90 Year
  Sex: Male
  Weight: 65 kg

DRUGS (4)
  1. HIZENTRA [Suspect]
     Active Substance: HUMAN IMMUNOGLOBULIN G
     Indication: Secondary immunodeficiency
     Dosage: 6 GRAM, QW
     Route: 050
     Dates: start: 20160917
  2. IMBRUVICA [Concomitant]
     Active Substance: IBRUTINIB
  3. PREDNISONE [Concomitant]
     Active Substance: PREDNISONE
  4. ASPIRIN [Concomitant]
     Active Substance: ASPIRIN

REACTIONS (1)
  - Staphylococcal infection [Unknown]

NARRATIVE: CASE EVENT DATE: 20211129
